FAERS Safety Report 4732641-6 (Version None)
Quarter: 2005Q3

REPORT INFORMATION
  Report Type: 
  Country: None (occurrence: None)
  Receive Date: 20050801
  Receipt Date: 20050720
  Transmission Date: 20060218
  Serious: Yes (Hospitalization, Other)
  Sender: FDA-Public Use
  Company Number: 2005092438

PATIENT
  Age: 84 Year
  Sex: Female

DRUGS (8)
  1. ALDACTONE [Suspect]
     Indication: PLEURAL EFFUSION
     Dosage: 25 MG (25 MG, QD), ORAL
     Route: 048
     Dates: start: 20050405, end: 20050419
  2. QUINAPRIL HCL [Suspect]
     Indication: CARDIAC FAILURE
     Dosage: 10 MG (10 MG, QD),ORAL
     Route: 048
     Dates: start: 20050405, end: 20050420
  3. LASIX [Concomitant]
  4. NIFEDIPINE [Concomitant]
  5. ALFACALCIDOL (AFACALCIDOL) [Concomitant]
  6. MERCAZOLE (THIAMAZOLE) [Concomitant]
  7. MAGNESIUM OXIDE (MAGNESIUM OXIDE) [Concomitant]
  8. RADONNA (FUROSEMIDE) [Concomitant]

REACTIONS (5)
  - ANGINA PECTORIS [None]
  - BLOOD UREA INCREASED [None]
  - DRUG INTERACTION [None]
  - HYPERKALAEMIA [None]
  - OXYGEN SATURATION DECREASED [None]
